FAERS Safety Report 9742963 (Version 1)
Quarter: 2013Q4

REPORT INFORMATION
  Report Type: Spontaneous
  Country: US (occurrence: US)
  Receive Date: 20131210
  Receipt Date: 20131210
  Transmission Date: 20140711
  Serious: No
  Sender: FDA-Public Use
  Company Number: US-TEVA-440474USA

PATIENT
  Age: 73 Year
  Sex: Male

DRUGS (1)
  1. BUDESONIDE [Suspect]
     Indication: CHRONIC OBSTRUCTIVE PULMONARY DISEASE
     Dosage: INJALER
     Dates: start: 201309, end: 201310

REACTIONS (3)
  - Dizziness [Unknown]
  - Fall [Unknown]
  - Head discomfort [Unknown]
